FAERS Safety Report 8027664-8 (Version None)
Quarter: 2012Q1

REPORT INFORMATION
  Report Type: 
  Country: None (occurrence: None)
  Receive Date: 20120106
  Receipt Date: 20111227
  Transmission Date: 20120608
  Serious: Yes (Death)
  Sender: FDA-Public Use
  Company Number: US-JNJFOC-20111212512

PATIENT
  Age: 58 Year
  Sex: Female

DRUGS (8)
  1. CARDIAC GLYCOSIDE [Suspect]
     Indication: SUICIDE ATTEMPT
  2. CALCIUM ANTAGONISTS [Suspect]
     Indication: SUICIDE ATTEMPT
     Route: 048
  3. DIPHENHYDRAMINE HCL [Suspect]
     Route: 003
  4. ANTILIPEMIC [Suspect]
     Indication: SUICIDE ATTEMPT
     Route: 048
  5. DIPHENHYDRAMINE HCL [Suspect]
     Indication: SUICIDE ATTEMPT
     Route: 003
  6. BENZODIAZEPINE NOS [Suspect]
     Indication: SUICIDE ATTEMPT
     Route: 048
  7. LEVOTHYROXINE SODIUM [Suspect]
     Indication: SUICIDE ATTEMPT
     Route: 048
  8. CARPROFEN [Suspect]
     Indication: SUICIDE ATTEMPT
     Route: 048

REACTIONS (2)
  - CARDIO-RESPIRATORY ARREST [None]
  - TOXICITY TO VARIOUS AGENTS [None]
